FAERS Safety Report 8877571 (Version 1)
Quarter: 2012Q4

REPORT INFORMATION
  Report Type: 
  Country: US (occurrence: US)
  Receive Date: 20121024
  Receipt Date: 20121024
  Transmission Date: 20130627
  Serious: No
  Sender: FDA-Public Use
  Company Number: US-B.I. PHARMACEUTICALS,INC./RIDGEFIELD-2012-BP-25632BP

PATIENT
  Sex: Female
  Weight: 82 kg

DRUGS (4)
  1. AGGRENOX [Suspect]
     Indication: CEREBROVASCULAR ACCIDENT PROPHYLAXIS
     Route: 048
     Dates: start: 2009
  2. COZAAR [Concomitant]
     Indication: HYPERTENSION
     Dosage: 12.5 mg
     Route: 048
     Dates: start: 2010
  3. VESICARE [Concomitant]
     Indication: URINARY INCONTINENCE
     Dosage: 5 mg
     Route: 048
     Dates: start: 2010
  4. LOVASTATIN [Concomitant]
     Indication: BLOOD CHOLESTEROL INCREASED
     Dosage: 10 mg
     Route: 048
     Dates: start: 2010

REACTIONS (1)
  - Urinary incontinence [Not Recovered/Not Resolved]
